FAERS Safety Report 18699083 (Version 2)
Quarter: 2021Q1

REPORT INFORMATION
  Report Type: Spontaneous
  Country: US (occurrence: US)
  Receive Date: 20210104
  Receipt Date: 20210318
  Transmission Date: 20210419
  Serious: Yes (Other)
  Sender: FDA-Public Use
  Company Number: US-SUNOVION-2020SUN003904

PATIENT
  Sex: Male

DRUGS (1)
  1. KYNMOBI [Suspect]
     Active Substance: APOMORPHINE HYDROCHLORIDE
     Indication: PARKINSON^S DISEASE
     Dosage: 20 MG
     Route: 060

REACTIONS (12)
  - Blood pressure decreased [Unknown]
  - Vision blurred [Recovered/Resolved]
  - Dehydration [Recovering/Resolving]
  - Gait disturbance [Recovered/Resolved]
  - Dizziness [Unknown]
  - Therapy interrupted [Unknown]
  - Near death experience [Unknown]
  - Asthenia [Unknown]
  - Presyncope [Recovered/Resolved]
  - Hypotension [Unknown]
  - Dyspnoea [Unknown]
  - Dysstasia [Recovered/Resolved]
